FAERS Safety Report 14689564 (Version 1)
Quarter: 2018Q1

REPORT INFORMATION
  Report Type: Spontaneous
  Country: US (occurrence: US)
  Receive Date: 20180327
  Receipt Date: 20180327
  Transmission Date: 20180509
  Serious: Yes (Disabling)
  Sender: FDA-Public Use
  Company Number: None

PATIENT
  Age: 36 Year
  Sex: Female
  Weight: 72 kg

DRUGS (1)
  1. CIPROFLOXACIN. [Suspect]
     Active Substance: CIPROFLOXACIN
     Indication: INFECTION
     Dosage: ?          QUANTITY:1 TABLET(S);?
     Route: 048
     Dates: start: 20170901, end: 20170930

REACTIONS (8)
  - Ear discomfort [None]
  - Joint swelling [None]
  - Rash vesicular [None]
  - Immobile [None]
  - Musculoskeletal pain [None]
  - Arthralgia [None]
  - Impaired work ability [None]
  - Otorrhoea [None]

NARRATIVE: CASE EVENT DATE: 20171115
